FAERS Safety Report 9491151 (Version 1)
Quarter: 2013Q3

REPORT INFORMATION
  Report Type: Spontaneous
  Country: JP (occurrence: JP)
  Receive Date: 20130830
  Receipt Date: 20130830
  Transmission Date: 20140515
  Serious: Yes (Other)
  Sender: FDA-Public Use
  Company Number: JP-ASTELLAS-2013JP008784

PATIENT
  Age: 63 Year
  Sex: Female

DRUGS (3)
  1. PROGRAF [Suspect]
     Indication: LIVER TRANSPLANT
     Route: 065
  2. CILNIDIPINE [Concomitant]
     Route: 048
  3. LAMIVUDINE [Concomitant]
     Route: 048

REACTIONS (1)
  - Renal disorder [Unknown]
